FAERS Safety Report 5122464-0 (Version None)
Quarter: 2006Q4

REPORT INFORMATION
  Report Type: 
  Country: None (occurrence: None)
  Receive Date: 20061004
  Receipt Date: 20060922
  Transmission Date: 20070319
  Serious: Yes (Death)
  Sender: FDA-Public Use
  Company Number: 2005BI021570

PATIENT
  Age: 67 Year
  Sex: Female

DRUGS (7)
  1. AVONEX [Suspect]
     Indication: MULTIPLE SCLEROSIS
     Dosage: IM
     Route: 030
  2. LISINOPRIL [Concomitant]
  3. FOSAMAX [Concomitant]
  4. PRIMIDONE [Concomitant]
  5. ZELNORM [Concomitant]
  6. MIRALAX [Concomitant]
  7. PROTONIX [Concomitant]

REACTIONS (5)
  - HYPONATRAEMIA [None]
  - MULTIPLE SCLEROSIS [None]
  - PANCYTOPENIA [None]
  - SEPSIS [None]
  - URINARY TRACT INFECTION [None]
